FAERS Safety Report 17500864 (Version 1)
Quarter: 2020Q1

REPORT INFORMATION
  Report Type: Report from Study
  Country: None (occurrence: CA)
  Receive Date: 20200305
  Receipt Date: 20200305
  Transmission Date: 20200409
  Serious: Yes (Death, Hospitalization)
  Sender: FDA-Public Use
  Company Number: CA-ABBVIE-20K-028-3305707-00

PATIENT
  Age: 66 Year
  Sex: Male

DRUGS (1)
  1. LUPRON DEPOT [Suspect]
     Active Substance: LEUPROLIDE ACETATE
     Indication: PROSTATE CANCER
     Route: 030
     Dates: start: 2019, end: 20191216

REACTIONS (3)
  - Unresponsive to stimuli [Unknown]
  - Death [Fatal]
  - Pneumonia [Unknown]

NARRATIVE: CASE EVENT DATE: 20200203
